FAERS Safety Report 16163214 (Version 1)
Quarter: 2019Q2

REPORT INFORMATION
  Report Type: Report from Study
  Country: CN (occurrence: CN)
  Receive Date: 20190405
  Receipt Date: 20190405
  Transmission Date: 20190711
  Serious: Yes (Other)
  Sender: FDA-Public Use
  Company Number: CN-ROCHE-2293283

PATIENT

DRUGS (10)
  1. AZATHIOPRINE. [Suspect]
     Active Substance: AZATHIOPRINE
     Indication: SYSTEMIC LUPUS ERYTHEMATOSUS
     Route: 065
  2. LEFLUNOMIDE. [Suspect]
     Active Substance: LEFLUNOMIDE
     Indication: SYSTEMIC LUPUS ERYTHEMATOSUS
     Route: 065
  3. METHOTREXATE SODIUM. [Suspect]
     Active Substance: METHOTREXATE SODIUM
     Indication: SYSTEMIC LUPUS ERYTHEMATOSUS
     Route: 065
  4. MYCOPHENOLATE MOFETIL. [Suspect]
     Active Substance: MYCOPHENOLATE MOFETIL
     Indication: SYSTEMIC LUPUS ERYTHEMATOSUS
     Route: 065
  5. MYCOPHENOLIC ACID. [Suspect]
     Active Substance: MYCOPHENOLIC ACID
     Indication: SYSTEMIC LUPUS ERYTHEMATOSUS
     Route: 065
  6. BELIMUMAB [Suspect]
     Active Substance: BELIMUMAB
     Indication: SYSTEMIC LUPUS ERYTHEMATOSUS
     Route: 042
  7. TRIPTERYGIUM GLYCOSIDE [Suspect]
     Active Substance: HERBALS
     Indication: SYSTEMIC LUPUS ERYTHEMATOSUS
     Route: 065
  8. METHOTREXATE. [Suspect]
     Active Substance: METHOTREXATE
     Indication: SYSTEMIC LUPUS ERYTHEMATOSUS
     Route: 065
  9. TOTAL GLUCOSIDES OF PAEONY [Suspect]
     Active Substance: HERBALS
     Indication: SYSTEMIC LUPUS ERYTHEMATOSUS
     Route: 065
  10. PREDNISONE. [Suspect]
     Active Substance: PREDNISONE
     Indication: SYSTEMIC LUPUS ERYTHEMATOSUS
     Route: 065

REACTIONS (13)
  - Cervix carcinoma [Unknown]
  - Blood immunoglobulin G decreased [Unknown]
  - Upper respiratory tract infection [Unknown]
  - Viral upper respiratory tract infection [Unknown]
  - Depression [Unknown]
  - Nasopharyngitis [Unknown]
  - Suicidal ideation [Unknown]
  - Urinary tract infection [Unknown]
  - Lupus nephritis [Unknown]
  - Herpes zoster [Unknown]
  - Upper respiratory tract infection bacterial [Unknown]
  - Hypokalaemia [Unknown]
  - Suicide attempt [Unknown]
